FAERS Safety Report 5851141-3 (Version None)
Quarter: 2008Q3

REPORT INFORMATION
  Report Type: 
  Country: None (occurrence: None)
  Receive Date: 20080820
  Receipt Date: 20080815
  Transmission Date: 20090109
  Serious: Yes (Hospitalization)
  Sender: FDA-Public Use
  Company Number: B0533579A

PATIENT
  Age: 82 Year
  Sex: Male

DRUGS (7)
  1. DILATREND [Suspect]
     Indication: DRUG USE FOR UNKNOWN INDICATION
     Route: 048
     Dates: end: 20071101
  2. CORDARONE [Suspect]
     Indication: ATRIAL FLUTTER
     Dosage: 400MG PER DAY
     Route: 048
     Dates: start: 20071101, end: 20071101
  3. SINTROM [Concomitant]
  4. SORTIS [Concomitant]
  5. TOREM [Concomitant]
  6. ENALAPRIL MALEATE [Concomitant]
  7. PANTOZOL [Concomitant]

REACTIONS (4)
  - BRADYCARDIA [None]
  - CARDIOGENIC SHOCK [None]
  - DRUG INTERACTION [None]
  - RENAL FAILURE CHRONIC [None]
